FAERS Safety Report 4336987-5 (Version None)
Quarter: 2004Q2

REPORT INFORMATION
  Report Type: 
  Country: None (occurrence: None)
  Receive Date: 20040408
  Receipt Date: 20040325
  Transmission Date: 20050107
  Serious: Yes (Other)
  Sender: FDA-Public Use
  Company Number: US-SHR-04-023495

PATIENT
  Age: 31 Year
  Sex: Female
  Weight: 65.8 kg

DRUGS (7)
  1. YASMIN [Suspect]
     Indication: MENORRHAGIA
     Dosage: 1 TAB(S), 1X/DAY, ORAL; 1 TAB(S), 1X/DAY, ORAL
     Route: 048
     Dates: start: 20030201, end: 20030501
  2. YASMIN [Suspect]
     Indication: MENORRHAGIA
     Dosage: 1 TAB(S), 1X/DAY, ORAL; 1 TAB(S), 1X/DAY, ORAL
     Route: 048
     Dates: start: 20040201, end: 20040329
  3. TOPAMAX  /AUS/ (TOPIRAMATE) [Concomitant]
  4. SYNTHROID [Concomitant]
  5. PROZAC [Concomitant]
  6. PROZAC [Concomitant]
  7. NEURONTIN [Concomitant]

REACTIONS (2)
  - DRUG INEFFECTIVE [None]
  - SUICIDAL IDEATION [None]
